FAERS Safety Report 11201062 (Version 2)
Quarter: 2015Q3

REPORT INFORMATION
  Report Type: Spontaneous
  Country: IT (occurrence: IT)
  Receive Date: 20150619
  Receipt Date: 20150705
  Transmission Date: 20151125
  Serious: Yes (Other)
  Sender: FDA-Public Use
  Company Number: IT-CIPLA LTD.-2015IT04782

PATIENT

DRUGS (4)
  1. GEMCITABINE [Suspect]
     Active Substance: GEMCITABINE\GEMCITABINE HYDROCHLORIDE
     Indication: PROSTATIC MASS
     Dosage: THREE CYCLES
     Route: 065
  2. GEMCITABINE [Suspect]
     Active Substance: GEMCITABINE\GEMCITABINE HYDROCHLORIDE
     Indication: METASTASES TO LUNG
  3. PAZOPANIB [Suspect]
     Active Substance: PAZOPANIB
     Indication: METASTASES TO LUNG
  4. PAZOPANIB [Suspect]
     Active Substance: PAZOPANIB
     Indication: PROSTATIC MASS
     Dosage: THREE CYCLES
     Route: 065

REACTIONS (3)
  - Pulmonary mass [Unknown]
  - Disease progression [Unknown]
  - Urinary retention [Unknown]
